FAERS Safety Report 6120881-3 (Version None)
Quarter: 2009Q1

REPORT INFORMATION
  Report Type: 
  Country: None (occurrence: None)
  Receive Date: 20090312
  Receipt Date: 20090312
  Transmission Date: 20090719
  Serious: No
  Sender: FDA-Public Use
  Company Number: None

PATIENT
  Age: 62 Year
  Sex: Female

DRUGS (1)
  1. DURAGESIC-25 [Suspect]
     Dosage: APPLY ONE PATCH TO CHEST WALL EVERY 48 HOURS THE PAST 2 TO 3 YEARS

REACTIONS (3)
  - DEVICE FAILURE [None]
  - PRODUCT QUALITY ISSUE [None]
  - PRURITUS [None]
